FAERS Safety Report 7686593-X (Version None)
Quarter: 2011Q3

REPORT INFORMATION
  Report Type: 
  Country: None (occurrence: None)
  Receive Date: 20110816
  Receipt Date: 20110811
  Transmission Date: 20111222
  Serious: Yes (Hospitalization)
  Sender: FDA-Public Use
  Company Number: GB-MERCK-1108GBR00073

PATIENT
  Age: 74 Year
  Sex: Male

DRUGS (8)
  1. FUROSEMIDE [Concomitant]
     Route: 065
  2. LOSARTAN POTASSIUM [Concomitant]
     Route: 048
  3. WARFARIN SODIUM [Concomitant]
     Route: 065
  4. DIGOXIN [Concomitant]
     Route: 065
  5. LANSOPRAZOLE [Concomitant]
     Route: 065
  6. JANUVIA [Suspect]
     Route: 048
     Dates: start: 20110727, end: 20110727
  7. MIRTAZAPINE [Concomitant]
     Route: 065
  8. ACETAMINOPHEN [Concomitant]
     Route: 065

REACTIONS (3)
  - DIARRHOEA [None]
  - DIARRHOEA HAEMORRHAGIC [None]
  - RECTAL HAEMORRHAGE [None]
